FAERS Safety Report 11297739 (Version 1)
Quarter: 2015Q3

REPORT INFORMATION
  Report Type: Spontaneous
  Country: US (occurrence: US)
  Receive Date: 20150722
  Receipt Date: 20150722
  Transmission Date: 20151125
  Serious: No
  Sender: FDA-Public Use
  Company Number: US-ELI_LILLY_AND_COMPANY-US200910002500

PATIENT
  Age: 87 Year
  Sex: Male

DRUGS (2)
  1. HUMATROPE [Suspect]
     Active Substance: SOMATROPIN
     Indication: GROWTH HORMONE DEFICIENCY
     Dosage: UNK, UNKNOWN
     Dates: start: 200301, end: 20090629
  2. HUMATROPE [Suspect]
     Active Substance: SOMATROPIN
     Dates: start: 20090629, end: 20091008

REACTIONS (5)
  - Growth hormone deficiency [Not Recovered/Not Resolved]
  - Drug ineffective [Not Recovered/Not Resolved]
  - Feeling abnormal [Not Recovered/Not Resolved]
  - Asthenia [Not Recovered/Not Resolved]
  - Blood growth hormone decreased [Not Recovered/Not Resolved]

NARRATIVE: CASE EVENT DATE: 200906
